FAERS Safety Report 17566670 (Version 2)
Quarter: 2020Q1

REPORT INFORMATION
  Report Type: Spontaneous
  Country: FI (occurrence: FI)
  Receive Date: 20200320
  Receipt Date: 20200324
  Transmission Date: 20200409
  Serious: Yes (Other)
  Sender: FDA-Public Use
  Company Number: FI-PFIZER INC-2020120079

PATIENT

DRUGS (3)
  1. SERTRALINE HCL [Suspect]
     Active Substance: SERTRALINE HYDROCHLORIDE
  2. CANDESARTAN. [Suspect]
     Active Substance: CANDESARTAN
     Dosage: UNK
     Dates: start: 201911
  3. ASPIRIN. [Suspect]
     Active Substance: ASPIRIN

REACTIONS (4)
  - Heart rate irregular [Unknown]
  - Myocardial infarction [Unknown]
  - Palpitations [Unknown]
  - Fatigue [Unknown]
